FAERS Safety Report 5268230-7 (Version None)
Quarter: 2007Q1

REPORT INFORMATION
  Report Type: 
  Country: None (occurrence: None)
  Receive Date: 20070314
  Receipt Date: 20070314
  Transmission Date: 20070707
  Serious: Yes (Hospitalization)
  Sender: FDA-Public Use
  Company Number: None

PATIENT
  Age: 41 Year
  Sex: Male

DRUGS (3)
  1. DILAUDID [Suspect]
     Indication: ABDOMINAL PAIN
     Dosage: 4MG PO BID
     Route: 048
  2. DILAUDID [Suspect]
     Indication: PANCREATITIS CHRONIC
     Dosage: 4MG PO BID
     Route: 048
  3. KLONOPIN [Suspect]
     Dosage: 1MG PO TID
     Route: 048

REACTIONS (2)
  - PNEUMONIA [None]
  - RESPIRATORY FAILURE [None]
